FAERS Safety Report 5412180-X (Version None)
Quarter: 2007Q3

REPORT INFORMATION
  Report Type: 
  Country: None (occurrence: None)
  Receive Date: 20070809
  Receipt Date: 20070803
  Transmission Date: 20080115
  Serious: No
  Sender: FDA-Public Use
  Company Number: TAP2007Q00964

PATIENT
  Age: 64 Year
  Sex: Male
  Weight: 95.3 kg

DRUGS (2)
  1. PREVACID [Suspect]
     Indication: GASTROOESOPHAGEAL REFLUX DISEASE
     Dosage: 30 MG, 1 IN 1 D; ORAL
     Route: 048
     Dates: start: 20070508, end: 20070524
  2. VITAMIN SUPPLEMENT (VITAMIN NOS) [Concomitant]

REACTIONS (4)
  - DISORIENTATION [None]
  - DIZZINESS [None]
  - DYSPNOEA [None]
  - VISUAL DISTURBANCE [None]
